FAERS Safety Report 5706353-6 (Version None)
Quarter: 2008Q2

REPORT INFORMATION
  Report Type: 
  Country: None (occurrence: None)
  Receive Date: 20080414
  Receipt Date: 20080405
  Transmission Date: 20081010
  Serious: Yes (Other)
  Sender: FDA-Public Use
  Company Number: CHPA2008US06162

PATIENT
  Age: 59 Year
  Sex: Female
  Weight: 60.8 kg

DRUGS (1)
  1. SLOW FE IRON TABLETS (FERROUS SULFATE) TABLET [Suspect]
     Indication: ANAEMIA
     Dosage: 160 MG, QW, ORAL
     Route: 048

REACTIONS (3)
  - ABDOMINAL PAIN UPPER [None]
  - DYSPEPSIA [None]
  - VOMITING [None]
